FAERS Safety Report 8958530 (Version 2)
Quarter: 2012Q4

REPORT INFORMATION
  Report Type: Spontaneous
  Country: FR (occurrence: None)
  Receive Date: 20121106
  Receipt Date: 20121106
  Transmission Date: 20130627
  Serious: Yes (Life-Threatening, Hospitalization, Other)
  Sender: FDA-Public Use
  Company Number: 2012033695

PATIENT
  Age: 36 Year
  Sex: Female

DRUGS (5)
  1. RHOPHYLAC [Suspect]
     Indication: NOSOCOMIAL INFECTION
     Route: 042
     Dates: start: 20121012
  2. SPASFON LYOC [Concomitant]
  3. MIFEPRISTONE [Concomitant]
  4. GEMEPROST [Concomitant]
  5. LAMALINE [Concomitant]

REACTIONS (4)
  - Anaphylactic shock [None]
  - Rash generalised [None]
  - Cough [None]
  - Dyspnoea [None]
